FAERS Safety Report 5286393-4 (Version None)
Quarter: 2007Q2

REPORT INFORMATION
  Report Type: 
  Country: None (occurrence: None)
  Receive Date: 20070404
  Receipt Date: 20070330
  Transmission Date: 20071010
  Serious: Yes (Hospitalization)
  Sender: FDA-Public Use
  Company Number: 2006UW23787

PATIENT
  Sex: Female
  Weight: 87.3 kg

DRUGS (10)
  1. SEROQUEL [Suspect]
     Indication: DEPRESSION
     Route: 048
     Dates: start: 20000101, end: 20040101
  2. SEROQUEL [Suspect]
     Indication: SCHIZOPHRENIA
     Route: 048
     Dates: start: 20000101, end: 20040101
  3. SEROQUEL [Suspect]
     Indication: PERSONALITY DISORDER
     Route: 048
     Dates: start: 20000101, end: 20040101
  4. ABILIFY [Concomitant]
  5. RISPERDAL [Concomitant]
  6. THORAZINE [Concomitant]
  7. ZYPREXA [Concomitant]
  8. BUSPAR [Concomitant]
  9. HYDROXYZINE [Concomitant]
  10. CITALOPRAM HYDROBROMIDE [Concomitant]

REACTIONS (2)
  - DIABETES MELLITUS NON-INSULIN-DEPENDENT [None]
  - OVERWEIGHT [None]
